FAERS Safety Report 23359032 (Version 3)
Quarter: 2024Q3

REPORT INFORMATION
  Report Type: Spontaneous
  Country: US (occurrence: US)
  Receive Date: 20240102
  Receipt Date: 20240902
  Transmission Date: 20241017
  Serious: No
  Sender: JOHNSON AND JOHNSON
  Company Number: US-JNJFOC-20231238457

PATIENT
  Age: 74 Year
  Sex: Male

DRUGS (2)
  1. MENS ROGAINE EXTRA STRENGTH [Suspect]
     Active Substance: MINOXIDIL
     Indication: Alopecia
     Dosage: FREQUENCY: TWICE A DAY FOR ABOUT 6 AND A HALF MONTHS.?HALF CAP, LAST ADMINISTRATION DATE JAN 2024
     Route: 061
     Dates: start: 202304
  2. MENS ROGAINE EXTRA STRENGTH [Suspect]
     Active Substance: MINOXIDIL
     Route: 061
     Dates: start: 20231201

REACTIONS (3)
  - Alopecia [Unknown]
  - Therapeutic product effect incomplete [Unknown]
  - Hair growth abnormal [Unknown]

NARRATIVE: CASE EVENT DATE: 20230101
